FAERS Safety Report 12078099 (Version 1)
Quarter: 2016Q1

REPORT INFORMATION
  Report Type: Spontaneous
  Country: US (occurrence: US)
  Receive Date: 20160215
  Receipt Date: 20160215
  Transmission Date: 20160526
  Serious: No
  Sender: FDA-Public Use
  Company Number: US-ALEXION-A201600850

PATIENT
  Age: 68 Year
  Sex: Female
  Weight: 65.5 kg

DRUGS (1)
  1. STRENSIQ [Suspect]
     Active Substance: ASFOTASE ALFA
     Indication: HYPOPHOSPHATASIA
     Dosage: 2 MG/KG, TIW (TOTAL DOSE OF 1.3 ML)
     Route: 058
     Dates: start: 20160124

REACTIONS (10)
  - Lethargy [Recovered/Resolved]
  - Injection site swelling [Unknown]
  - Injection site induration [Unknown]
  - Diarrhoea [Recovered/Resolved]
  - Injection site pain [Unknown]
  - Flushing [Recovered/Resolved]
  - Varicose vein [Unknown]
  - Injection site erythema [Unknown]
  - Nausea [Recovered/Resolved]
  - Dizziness [Recovered/Resolved]

NARRATIVE: CASE EVENT DATE: 201601
